FAERS Safety Report 8156763-5 (Version None)
Quarter: 2012Q1

REPORT INFORMATION
  Report Type: 
  Country: None (occurrence: None)
  Receive Date: 20120213
  Receipt Date: 20120201
  Transmission Date: 20120608
  Serious: Yes (Hospitalization, Other)
  Sender: FDA-Public Use
  Company Number: 2011027925

PATIENT
  Age: 59 Year
  Sex: Female
  Weight: 58.9676 kg

DRUGS (29)
  1. HIZENTRA [Suspect]
  2. HIZENTRA [Suspect]
  3. HIZENTRA [Suspect]
     Indication: HYPOGAMMAGLOBULINAEMIA
     Dosage: SEE IMAGE
     Route: 058
     Dates: start: 20110613
  4. HIZENTRA [Suspect]
     Indication: HYPOGAMMAGLOBULINAEMIA
     Dosage: SEE IMAGE
     Route: 058
     Dates: start: 20110321
  5. HIZENTRA [Suspect]
     Indication: HYPOGAMMAGLOBULINAEMIA
     Dosage: SEE IMAGE
     Route: 058
     Dates: start: 20120122
  6. HIZENTRA [Suspect]
     Indication: HYPOGAMMAGLOBULINAEMIA
     Dosage: SEE IMAGE
     Route: 058
     Dates: start: 20110315
  7. HIZENTRA [Suspect]
     Indication: HYPOGAMMAGLOBULINAEMIA
     Dosage: SEE IMAGE
     Route: 058
     Dates: start: 20110101
  8. HIZENTRA [Suspect]
     Indication: HYPOGAMMAGLOBULINAEMIA
     Dosage: SEE IMAGE
     Route: 058
     Dates: start: 20110613
  9. HIZENTRA [Suspect]
     Indication: HYPOGAMMAGLOBULINAEMIA
     Dosage: SEE IMAGE
     Route: 058
     Dates: start: 20110815, end: 20110822
  10. HIZENTRA [Suspect]
     Indication: HYPOGAMMAGLOBULINAEMIA
     Dosage: SEE IMAGE
     Route: 058
     Dates: start: 20110815, end: 20110822
  11. HIZENTRA [Suspect]
  12. HIZENTRA [Suspect]
  13. HIZENTRA [Suspect]
  14. ASTEPRO [Concomitant]
  15. HIZENTRA [Suspect]
  16. HIZENTRA [Suspect]
  17. BYSTOLIC [Concomitant]
  18. SINGULAIR [Concomitant]
  19. DIOVAN [Concomitant]
  20. HIZENTRA [Suspect]
  21. SUDAFED 12 HOUR [Concomitant]
  22. VERAMYST (FLUTICASONE) [Concomitant]
  23. AMBIEN [Concomitant]
  24. MUCINEX [Concomitant]
  25. NAPROXEN [Concomitant]
  26. CALCIUM CARBONATE [Concomitant]
  27. HIZENTRA [Suspect]
  28. XANAX [Concomitant]
  29. CLARITIN [Concomitant]

REACTIONS (9)
  - SINUSITIS [None]
  - EPISTAXIS [None]
  - INFUSION SITE SWELLING [None]
  - INFUSION SITE ERYTHEMA [None]
  - MUSCLE SPASMS [None]
  - INFUSION SITE IRRITATION [None]
  - HYPERTENSION [None]
  - SCAB [None]
  - INFUSION SITE EXTRAVASATION [None]
